FAERS Safety Report 4413015-4 (Version None)
Quarter: 2004Q3

REPORT INFORMATION
  Report Type: 
  Country: None (occurrence: None)
  Receive Date: 20040730
  Receipt Date: 20040730
  Transmission Date: 20050211
  Serious: Yes (Hospitalization)
  Sender: FDA-Public Use
  Company Number: None

PATIENT
  Age: 79 Year
  Sex: Male
  Weight: 66.2252 kg

DRUGS (8)
  1. HYDROCODONE 5/ ACETAMINOPHEN 500 MG [Suspect]
     Indication: JOINT INJURY
     Dosage: 1 Q 6 HR PRN
     Dates: start: 20040622, end: 20040624
  2. HYDROCODONE 5/ ACETAMINOPHEN 500 MG [Suspect]
     Indication: PAIN
     Dosage: 1 Q 6 HR PRN
     Dates: start: 20040622, end: 20040624
  3. CLOPIDOGREL BISULFATE [Concomitant]
  4. ACETAMINOPHEN [Concomitant]
  5. ASPIRIN [Concomitant]
  6. METOPROLOL TARTRATE [Concomitant]
  7. TERAZOSIN HCL [Concomitant]
  8. ISOSORBIDE DINITRATE [Concomitant]

REACTIONS (2)
  - ASTHENIA [None]
  - MENTAL STATUS CHANGES [None]
